FAERS Safety Report 11266120 (Version 1)
Quarter: 2015Q2

REPORT INFORMATION
  Report Type: Spontaneous
  Country: US (occurrence: None)
  Receive Date: 20150625
  Receipt Date: 20150625
  Transmission Date: 20150821
  Serious: Yes (Disabling)
  Sender: FDA-Public Use
  Company Number: A-NJ2015-115639

PATIENT
  Age: 67 Year
  Sex: Male

DRUGS (2)
  1. REVATIO (SILDENAFIL CITRATE) [Concomitant]
  2. OPSUMIT [Suspect]
     Active Substance: MACITENTAN
     Indication: PULMONARY ARTERIAL HYPERTENSION
     Route: 048
     Dates: start: 201503

REACTIONS (2)
  - Gait disturbance [None]
  - Dyspnoea [None]

NARRATIVE: CASE EVENT DATE: 201503
